FAERS Safety Report 4564452-9 (Version None)
Quarter: 2005Q1

REPORT INFORMATION
  Report Type: 
  Country: None (occurrence: None)
  Receive Date: 20050126
  Receipt Date: 20041224
  Transmission Date: 20050727
  Serious: Yes (Life-Threatening, Hospitalization)
  Sender: FDA-Public Use
  Company Number: 200403312

PATIENT
  Age: 46 Year
  Sex: Female

DRUGS (18)
  1. SOSEGON/PENTAZOCINE HYDROCHLORIDE [Suspect]
     Indication: HAEMODIALYSIS
     Dosage: 25-50(MG)/DAY PO
     Route: 048
     Dates: start: 20041211, end: 20041220
  2. SOSEGON/PENTAZOCINE HYDROCHLORIDE [Suspect]
     Indication: PAIN IN EXTREMITY
     Dosage: 25-50(MG)/DAY PO
     Route: 048
     Dates: start: 20041211, end: 20041220
  3. GLAKAY/MENATETRENONE [Concomitant]
  4. POLYFUL/POLCARBOPHIL CALCIUM [Concomitant]
  5. LUVOX [Concomitant]
  6. CALTAN/PRECIPITATED [Concomitant]
  7. SENNARIDE/SENNOSIDE [Concomitant]
  8. SELBEX/TEPRENONE [Concomitant]
  9. LORAZEPAM [Concomitant]
  10. NI/PREDNISOLONE [Concomitant]
  11. NI/ALLOPURINOL [Concomitant]
  12. NI/MECOBALAMIN [Concomitant]
  13. LIPITOR [Concomitant]
  14. PRORENAL/LIMAPROST ALFADEX [Concomitant]
  15. CARVEDILOL [Concomitant]
  16. PRORENAL/LIMAPROST ALFADEX [Concomitant]
  17. METROC/AMEZINIUM METISULFATE [Concomitant]
  18. LANSOPRAZOLE [Concomitant]

REACTIONS (13)
  - C-REACTIVE PROTEIN INCREASED [None]
  - DEPRESSED LEVEL OF CONSCIOUSNESS [None]
  - DISSEMINATED INTRAVASCULAR COAGULATION [None]
  - DRUG INTERACTION [None]
  - EXCORIATION [None]
  - GENERALISED OEDEMA [None]
  - HEPATIC FUNCTION ABNORMAL [None]
  - HYPOTENSION [None]
  - PAIN [None]
  - RASH PRURITIC [None]
  - SKIN ULCER [None]
  - TOXIC SKIN ERUPTION [None]
  - WHITE BLOOD CELL COUNT INCREASED [None]
